FAERS Safety Report 6972390-7 (Version None)
Quarter: 2010Q3

REPORT INFORMATION
  Report Type: 
  Country: None (occurrence: None)
  Receive Date: 20100909
  Receipt Date: 20100827
  Transmission Date: 20110219
  Serious: Yes (Hospitalization)
  Sender: FDA-Public Use
  Company Number: DE-RANBAXY-2010RR-37941

PATIENT
  Age: 75 Year
  Sex: Female
  Weight: 73.4 kg

DRUGS (1)
  1. FLECAINIDE ACETATE [Suspect]
     Indication: ATRIAL FIBRILLATION
     Dosage: 2 DF, BID
     Dates: start: 20100601, end: 20100715

REACTIONS (2)
  - ATAXIA [None]
  - DYSKINESIA [None]
